FAERS Safety Report 5029109-9 (Version None)
Quarter: 2006Q2

REPORT INFORMATION
  Report Type: 
  Country: None (occurrence: None)
  Receive Date: 20060619
  Receipt Date: 20060419
  Transmission Date: 20061013
  Serious: Yes (Hospitalization)
  Sender: FDA-Public Use
  Company Number: US-BRISTOL-MYERS SQUIBB COMPANY-13351226

PATIENT
  Age: 45 Year
  Sex: Female

DRUGS (9)
  1. EFAVIRENZ [Suspect]
     Indication: HIV INFECTION
     Dosage: THERAPY STOPPED 03-MAR-2006, RESTARTED AT 200 MG DAILY ON 10-MAR-2006 AND DISCONTINUED 19-MAR-2006.
     Route: 048
     Dates: start: 20050919, end: 20060319
  2. TRUVADA [Concomitant]
     Route: 048
  3. RITONAVIR [Concomitant]
     Route: 048
  4. TIPRANAVIR [Concomitant]
     Route: 048
  5. FUZEON [Concomitant]
     Route: 058
  6. KEPPRA [Concomitant]
     Route: 048
  7. TRIMETHOPRIM + SULFAMETHOXAZOLE [Concomitant]
     Route: 048
  8. CLONAZEPAM [Concomitant]
     Route: 048
  9. CLONAZEPAM [Concomitant]
     Route: 048

REACTIONS (4)
  - CONFUSIONAL STATE [None]
  - CONVULSION [None]
  - DRUG LEVEL INCREASED [None]
  - LETHARGY [None]
